FAERS Safety Report 23134000 (Version 1)
Quarter: 2023Q4

REPORT INFORMATION
  Report Type: Spontaneous
  Country: TR (occurrence: TR)
  Receive Date: 20231101
  Receipt Date: 20231101
  Transmission Date: 20240110
  Serious: Yes (Congenital Anomaly, Other)
  Sender: FDA-Public Use
  Company Number: TR-GRANULES-TR-2023GRALIT00298

PATIENT

DRUGS (2)
  1. LAMOTRIGINE [Suspect]
     Active Substance: LAMOTRIGINE
     Indication: Foetal exposure during pregnancy
     Route: 064
  2. DIVALPROEX SODIUM [Suspect]
     Active Substance: DIVALPROEX SODIUM
     Indication: Foetal exposure during pregnancy
     Route: 064

REACTIONS (5)
  - Limb hypoplasia congenital [Unknown]
  - Aplasia [Unknown]
  - Cleft palate [Unknown]
  - Drug interaction [Unknown]
  - Foetal exposure during pregnancy [Unknown]
